FAERS Safety Report 23594973 (Version 2)
Quarter: 2024Q1

REPORT INFORMATION
  Report Type: Other
  Country: CA (occurrence: None)
  Receive Date: 20240305
  Receipt Date: 20240308
  Transmission Date: 20240409
  Serious: Yes (Hospitalization)
  Sender: FDA-Public Use
  Company Number: CA-ROCHE-3518544

PATIENT
  Age: 32 Year
  Sex: Female
  Weight: 51 kg

DRUGS (2)
  1. ACTEMRA [Suspect]
     Active Substance: TOCILIZUMAB
     Indication: Still^s disease
     Route: 042
     Dates: start: 20240202, end: 20240228
  2. AMOXICILLIN [Concomitant]
     Active Substance: AMOXICILLIN

REACTIONS (3)
  - Pneumonia [Unknown]
  - Hypotension [Unknown]
  - Off label use [Unknown]

NARRATIVE: CASE EVENT DATE: 20240222
